FAERS Safety Report 19310681 (Version 1)
Quarter: 2021Q2

REPORT INFORMATION
  Report Type: Spontaneous
  Country: FR (occurrence: FR)
  Receive Date: 20210526
  Receipt Date: 20210526
  Transmission Date: 20210717
  Serious: Yes (Death, Hospitalization, Other)
  Sender: FDA-Public Use
  Company Number: NVSC2021FR116995

PATIENT
  Age: 74 Year

DRUGS (4)
  1. FUROSEMIDE. [Suspect]
     Active Substance: FUROSEMIDE
     Indication: PRODUCT USED FOR UNKNOWN INDICATION
     Dosage: 80 DF (80 MG/ML)
     Route: 065
  2. CORDARONE [Suspect]
     Active Substance: AMIODARONE HYDROCHLORIDE
     Indication: ARRHYTHMIA
     Dosage: 200 MG, QD (1 TABLET IN THE MORNING FOR 3 MONTHS EXCEPT SATURDAY AND SUNDAY)
     Route: 048
     Dates: start: 201709
  3. CORDARONE [Suspect]
     Active Substance: AMIODARONE HYDROCHLORIDE
     Indication: MYOCARDIAL ISCHAEMIA
  4. METFORMIN ARROW [Concomitant]
     Active Substance: METFORMIN HYDROCHLORIDE
     Indication: TYPE 2 DIABETES MELLITUS
     Dosage: 500 MG, Q12H (1 TABLET IN THE MORNING AND 1 TABLET IN THE EVENING)
     Route: 048

REACTIONS (12)
  - Cardiac arrest [Fatal]
  - Acute respiratory distress syndrome [Fatal]
  - Condition aggravated [Fatal]
  - Dyspnoea [Fatal]
  - Weight decreased [Fatal]
  - Crepitations [Fatal]
  - Asthenia [Fatal]
  - Hypoxia [Fatal]
  - Multiple organ dysfunction syndrome [Fatal]
  - Cough [Fatal]
  - Orthopnoea [Fatal]
  - C-reactive protein increased [Fatal]

NARRATIVE: CASE EVENT DATE: 201709
